FAERS Safety Report 9466355 (Version 4)
Quarter: 2013Q3

REPORT INFORMATION
  Report Type: Spontaneous
  Country: US (occurrence: US)
  Receive Date: 20130820
  Receipt Date: 20130918
  Transmission Date: 20140515
  Serious: No
  Sender: FDA-Public Use
  Company Number: US-009507513-1308USA008341

PATIENT
  Sex: Male

DRUGS (2)
  1. AFRIN SPRAY [Suspect]
     Indication: PRODUCT USED FOR UNKNOWN INDICATION
     Dosage: UNK, UNKNOWN
     Route: 045
  2. AFRIN SPRAY [Suspect]
     Indication: MEDICAL OBSERVATION

REACTIONS (2)
  - Epistaxis [Unknown]
  - Product container issue [Unknown]
